FAERS Safety Report 8834166 (Version 1)
Quarter: 2012Q4

REPORT INFORMATION
  Report Type: 
  Country: JP (occurrence: JP)
  Receive Date: 20121010
  Receipt Date: 20121010
  Transmission Date: 20130627
  Serious: Yes (Other)
  Sender: FDA-Public Use
  Company Number: JP-WATSON-2012-17317

PATIENT
  Age: 35 Year
  Sex: Female

DRUGS (2)
  1. PREDNISOLONE (UNKNOWN) [Suspect]
     Indication: SYSTEMIC LUPUS ERYTHEMATOSUS
     Dosage: 40 to 60 mg daily
     Route: 065
  2. RISPERIDONE (UNKNOWN) [Suspect]
     Indication: AFFECTIVE DISORDER
     Dosage: 1-9 mg daily
     Route: 065

REACTIONS (1)
  - Dyslipidaemia [Unknown]
